FAERS Safety Report 24603971 (Version 1)
Quarter: 2024Q4

REPORT INFORMATION
  Report Type: Spontaneous
  Country: US (occurrence: US)
  Receive Date: 20241111
  Receipt Date: 20241111
  Transmission Date: 20250114
  Serious: Yes (Other)
  Sender: GLAXOSMITHKLINE
  Company Number: US-GSK-US2024AMR137130

PATIENT

DRUGS (1)
  1. ALBUTEROL SULFATE [Suspect]
     Active Substance: ALBUTEROL SULFATE
     Indication: Dyspnoea
     Dosage: UNK,18G/200 METERED

REACTIONS (5)
  - Brain hypoxia [Unknown]
  - Headache [Unknown]
  - Chronic obstructive pulmonary disease [Unknown]
  - Product prescribing error [Unknown]
  - Wrong technique in product usage process [Unknown]
